FAERS Safety Report 8235408-X (Version None)
Quarter: 2012Q1

REPORT INFORMATION
  Report Type: 
  Country: None (occurrence: None)
  Receive Date: 20120326
  Receipt Date: 20120315
  Transmission Date: 20120608
  Serious: Yes (Hospitalization)
  Sender: FDA-Public Use
  Company Number: NL-MEDIMMUNE-MEDI-0015215

PATIENT
  Sex: Male
  Weight: 3.58 kg

DRUGS (2)
  1. SYNAGIS [Suspect]
     Indication: HEART DISEASE CONGENITAL
     Route: 030
     Dates: start: 20120119, end: 20120216
  2. SYNAGIS [Suspect]
     Route: 030
     Dates: start: 20120315

REACTIONS (1)
  - OXYGEN SATURATION DECREASED [None]
